FAERS Safety Report 7516135-0 (Version None)
Quarter: 2011Q2

REPORT INFORMATION
  Report Type: 
  Country: None (occurrence: None)
  Receive Date: 20110601
  Receipt Date: 20110526
  Transmission Date: 20111010
  Serious: Yes (Other)
  Sender: FDA-Public Use
  Company Number: CA-ROCHE-779597

PATIENT
  Age: 45 Year
  Sex: Male

DRUGS (2)
  1. NAPROXEN [Suspect]
     Route: 065
  2. CIMETIDINE [Suspect]
     Route: 065

REACTIONS (8)
  - LEUKOCYTURIA [None]
  - NAUSEA [None]
  - NEPHRITIS ALLERGIC [None]
  - TUBULOINTERSTITIAL NEPHRITIS [None]
  - PYELONEPHRITIS ACUTE [None]
  - CHILLS [None]
  - PYREXIA [None]
  - PYURIA [None]
